FAERS Safety Report 11452207 (Version 1)
Quarter: 2015Q3

REPORT INFORMATION
  Report Type: Spontaneous
  Country: US (occurrence: US)
  Receive Date: 20150903
  Receipt Date: 20150903
  Transmission Date: 20151125
  Serious: No
  Sender: FDA-Public Use
  Company Number: US-ROCHE-1066776

PATIENT
  Sex: Male
  Weight: 80 kg

DRUGS (7)
  1. TRAZODONE [Concomitant]
     Active Substance: TRAZODONE HYDROCHLORIDE
     Indication: INSOMNIA
     Route: 048
     Dates: start: 20110808, end: 20111007
  2. TRAMADOL. [Concomitant]
     Active Substance: TRAMADOL
     Indication: PAIN
     Route: 048
     Dates: start: 20110814, end: 20111201
  3. RIBAVIRON C [Suspect]
     Active Substance: RIBAVIRIN
     Indication: HEPATITIS C
     Route: 048
     Dates: start: 20110805, end: 20111201
  4. ALEVE [Concomitant]
     Active Substance: NAPROXEN SODIUM
     Route: 048
     Dates: start: 20110909
  5. GABAPENTIN. [Concomitant]
     Active Substance: GABAPENTIN
     Route: 048
     Dates: start: 20110909
  6. LISINOPRIL. [Concomitant]
     Active Substance: LISINOPRIL
     Route: 048
     Dates: start: 20110613
  7. PEGASYS [Suspect]
     Active Substance: PEGINTERFERON ALFA-2A
     Indication: HEPATITIS C
     Route: 058
     Dates: start: 20110805, end: 20111201

REACTIONS (6)
  - Papilloedema [Not Recovered/Not Resolved]
  - Dry eye [Unknown]
  - Cataract nuclear [Unknown]
  - Photopsia [Recovered/Resolved]
  - Visual field defect [Unknown]
  - Vision blurred [Unknown]
